FAERS Safety Report 9677567 (Version 1)
Quarter: 2013Q4

REPORT INFORMATION
  Report Type: Spontaneous
  Country: US (occurrence: None)
  Receive Date: 20131107
  Receipt Date: 20131107
  Transmission Date: 20140711
  Serious: Yes (Disabling)
  Sender: FDA-Public Use
  Company Number: None

PATIENT
  Age: 83 Year
  Sex: Female
  Weight: 65.77 kg

DRUGS (1)
  1. PROLIA [Suspect]
     Dosage: A SHOT AS NEEDED INTO THE MUSCLE
     Dates: start: 20130703, end: 20131231

REACTIONS (2)
  - Dyspnoea [None]
  - Ear discomfort [None]
